FAERS Safety Report 17911830 (Version 1)
Quarter: 2020Q2

REPORT INFORMATION
  Report Type: Report from Study
  Country: BR (occurrence: BR)
  Receive Date: 20200618
  Receipt Date: 20200618
  Transmission Date: 20200714
  Serious: Yes (Other)
  Sender: FDA-Public Use
  Company Number: NVSC2020BR080846

PATIENT
  Age: 65 Year
  Sex: Female
  Weight: 55 kg

DRUGS (10)
  1. COSENTYX [Suspect]
     Active Substance: SECUKINUMAB
     Indication: PSORIATIC ARTHROPATHY
     Dosage: 300 MG
     Route: 065
     Dates: start: 20180606
  2. DIOSMINA HESPERIDINA [Concomitant]
     Indication: POOR PERIPHERAL CIRCULATION
     Dosage: UNK(2 TABLETS OF 450 MG OF DIOSMINAND 50 MG OF HESPERIDINA PER DAY)
     Route: 048
     Dates: start: 2002
  3. HYDROXYCHLOROQUINE [Suspect]
     Active Substance: HYDROXYCHLOROQUINE
     Indication: RHEUMATIC DISORDER
     Dosage: 400 MG, QD(BEFORE COSENTYX)
     Route: 048
  4. METHOTREXATE. [Concomitant]
     Active Substance: METHOTREXATE
     Indication: RHEUMATIC DISORDER
     Dosage: 2.5 MG(5 TABLETS ONCE A WEEK, STARTED BEFORE COSENTYX)
     Route: 048
  5. OMEPRAZOLE. [Concomitant]
     Active Substance: OMEPRAZOLE
     Indication: ACIDOSIS
     Dosage: 20 MG, QD(SINCE 20 YEARS OLD)
     Route: 048
  6. ALENDRONATE SODIUM. [Concomitant]
     Active Substance: ALENDRONATE SODIUM
     Indication: BONE DISORDER
     Dosage: 70 MG, QW
     Route: 048
     Dates: start: 2015
  7. FOLIC ACID. [Concomitant]
     Active Substance: FOLIC ACID
     Indication: PRODUCT USED FOR UNKNOWN INDICATION
     Dosage: 5 MG(2 TABLETS OF 5 MG ONCE A WEEK)
     Route: 048
  8. COSENTYX [Suspect]
     Active Substance: SECUKINUMAB
     Dosage: 150 MG, QMO(2 AMPOULES)
     Route: 058
     Dates: start: 20200606
  9. CALCIUM [Concomitant]
     Active Substance: CALCIUM
     Indication: BONE DISORDER
     Dosage: 600 MG(ONE TABLET OF 600 MG TWICE DAILY)
     Route: 048
     Dates: start: 2014
  10. VITAMIN D [Concomitant]
     Active Substance: VITAMIN D NOS
     Indication: BONE DISORDER
     Dosage: 400 MG(ONE TABLET OF 400 MG TWICE DAILY)
     Route: 048
     Dates: start: 2014

REACTIONS (2)
  - Cataract [Recovered/Resolved]
  - Hypermetropia [Recovered/Resolved]

NARRATIVE: CASE EVENT DATE: 20200305
